FAERS Safety Report 5743370-4 (Version None)
Quarter: 2008Q2

REPORT INFORMATION
  Report Type: 
  Country: None (occurrence: None)
  Receive Date: 20080519
  Receipt Date: 20080519
  Transmission Date: 20081010
  Serious: Yes (Other)
  Sender: FDA-Public Use
  Company Number: None

PATIENT
  Age: 80 Year
  Sex: Male
  Weight: 88.4514 kg

DRUGS (1)
  1. DIGITEK TAB 0.125 0.125 ACTAVIS [Suspect]
     Indication: CARDIAC DISORDER
     Dosage: 1 TAB ONCE A DAY SAME PO
     Route: 048
     Dates: start: 20080121, end: 20080513

REACTIONS (2)
  - DIARRHOEA [None]
  - URTICARIA [None]
